FAERS Safety Report 8866461 (Version 3)
Quarter: 2012Q4

REPORT INFORMATION
  Report Type: 
  Country: US (occurrence: US)
  Receive Date: 20121025
  Receipt Date: 20121207
  Transmission Date: 20130627
  Serious: Yes (Hospitalization, Other)
  Sender: FDA-Public Use
  Company Number: US-009507513-2012SP000999

PATIENT

DRUGS (2)
  1. NUVARING [Suspect]
     Indication: CONTRACEPTION
     Route: 067
     Dates: start: 200906, end: 201001
  2. NUVARING [Suspect]
     Dosage: UNK
     Route: 067

REACTIONS (13)
  - Pulmonary embolism [Recovered/Resolved]
  - Deep vein thrombosis [Recovered/Resolved]
  - Dyspnoea [Recovered/Resolved]
  - Ovarian cyst [Unknown]
  - Pregnancy [Unknown]
  - Cervical dysplasia [Unknown]
  - Papilloma viral infection [Unknown]
  - Cervicitis [Unknown]
  - Fatigue [Not Recovered/Not Resolved]
  - Dyspnoea exertional [Unknown]
  - Asthma [Unknown]
  - Gastrooesophageal reflux disease [Unknown]
  - Embolism venous [Unknown]
